FAERS Safety Report 12933941 (Version 1)
Quarter: 2016Q4

REPORT INFORMATION
  Report Type: Spontaneous
  Country: CN (occurrence: CN)
  Receive Date: 20161111
  Receipt Date: 20161111
  Transmission Date: 20170207
  Serious: Yes (Hospitalization)
  Sender: FDA-Public Use
  Company Number: CN-ELI_LILLY_AND_COMPANY-CN201611001905

PATIENT
  Sex: Female
  Weight: 70.5 kg

DRUGS (3)
  1. SODIUM VALPROATE [Concomitant]
     Active Substance: VALPROATE SODIUM
     Dosage: 0.4 G, BID
     Route: 065
  2. ZYPREXA [Suspect]
     Active Substance: OLANZAPINE
     Indication: MANIA
     Dosage: 10 MG, QD
     Route: 048
     Dates: start: 20130101, end: 20160722
  3. LOXAPINE SUCCINATE. [Concomitant]
     Active Substance: LOXAPINE SUCCINATE
     Dosage: 34 MG, QD
     Route: 065

REACTIONS (2)
  - Blood glucose increased [Unknown]
  - Ketosis [Recovering/Resolving]
